FAERS Safety Report 7035534-7 (Version None)
Quarter: 2010Q4

REPORT INFORMATION
  Report Type: 
  Country: None (occurrence: None)
  Receive Date: 20101008
  Receipt Date: 20100930
  Transmission Date: 20110411
  Serious: Yes (Other)
  Sender: FDA-Public Use
  Company Number: PHHY2010US65440

PATIENT
  Sex: Female

DRUGS (4)
  1. EXELON [Suspect]
     Route: 062
  2. LORTAB [Suspect]
  3. MUSCLE RELAXANTS [Suspect]
  4. ANTIDEPRESSANTS [Suspect]

REACTIONS (3)
  - HALLUCINATION [None]
  - MOOD SWINGS [None]
  - SPEECH DISORDER [None]
